FAERS Safety Report 23566031 (Version 1)
Quarter: 2024Q1

REPORT INFORMATION
  Report Type: Spontaneous
  Country: US (occurrence: None)
  Receive Date: 20240225
  Receipt Date: 20240225
  Transmission Date: 20240410
  Serious: Yes (Other)
  Sender: FDA-Public Use
  Company Number: None

PATIENT
  Age: 41 Year
  Sex: Female
  Weight: 72.9 kg

DRUGS (1)
  1. SEMAGLUTIDE [Suspect]
     Active Substance: SEMAGLUTIDE
     Indication: Weight decreased

REACTIONS (7)
  - Product use in unapproved indication [None]
  - Physical product label issue [None]
  - Product sterility issue [None]
  - Rash [None]
  - Tongue disorder [None]
  - Therapy cessation [None]
  - Product compounding quality issue [None]

NARRATIVE: CASE EVENT DATE: 20231230
